FAERS Safety Report 8100103-4 (Version None)
Quarter: 2012Q1

REPORT INFORMATION
  Report Type: 
  Country: None (occurrence: None)
  Receive Date: 20120129
  Receipt Date: 20111129
  Transmission Date: 20120608
  Serious: No
  Sender: FDA-Public Use
  Company Number: US-ABBOTT-11P-163-0878915-00

PATIENT
  Sex: Female

DRUGS (3)
  1. HUMIRA [Suspect]
     Indication: GRANULOMA ANNULARE
     Route: 058
     Dates: start: 20110901
  2. SYNTHROID [Concomitant]
     Indication: THYROID DISORDER
  3. PREMPRO [Concomitant]
     Indication: MENOPAUSE

REACTIONS (2)
  - OFF LABEL USE [None]
  - INJECTION SITE PRURITUS [None]
